FAERS Safety Report 15247907 (Version 1)
Quarter: 2018Q3

REPORT INFORMATION
  Report Type: Spontaneous
  Country: US (occurrence: US)
  Receive Date: 20180807
  Receipt Date: 20180807
  Transmission Date: 20181010
  Serious: Yes (Other)
  Sender: FDA-Public Use
  Company Number: US-ROCHE-2164081

PATIENT
  Age: 63 Year
  Sex: Male
  Weight: 84.3 kg

DRUGS (15)
  1. PANTOPRAZOLE [Concomitant]
     Active Substance: PANTOPRAZOLE
     Dosage: ONGOING: YES
     Route: 065
  2. XELODA [Suspect]
     Active Substance: CAPECITABINE
     Dosage: SECOND CYCLE ;ONGOING: NO
     Route: 065
  3. ASPRIN [Concomitant]
     Active Substance: ASPIRIN
     Dosage: ONGOING: YES
     Route: 065
  4. BACTRIM [Concomitant]
     Active Substance: SULFAMETHOXAZOLE\TRIMETHOPRIM
     Dosage: ONGOING: NO
     Route: 065
  5. ATORVASTATIN [Concomitant]
     Active Substance: ATORVASTATIN
     Dosage: ONGOING: YES
     Route: 065
  6. LISINOPRIL. [Concomitant]
     Active Substance: LISINOPRIL
     Dosage: ONGOING: YES
     Route: 065
  7. XELODA [Suspect]
     Active Substance: CAPECITABINE
     Dosage: FIRST CYCLE ;ONGOING: NO
     Route: 065
     Dates: start: 20180605
  8. ATENOLOL. [Concomitant]
     Active Substance: ATENOLOL
     Dosage: ONGOING: YES
     Route: 065
  9. BASAGLAR [Concomitant]
     Active Substance: INSULIN GLARGINE
     Dosage: ^TYPE OF INSULIN^ ;ONGOING: YES
     Route: 065
  10. CLOPIDOGREL [Concomitant]
     Active Substance: CLOPIDOGREL BISULFATE
     Dosage: ONGOING: YES
     Route: 065
  11. ASPARTAME [Concomitant]
     Active Substance: ASPARTAME
     Dosage: ONGOING: YES
     Route: 065
  12. XELODA [Suspect]
     Active Substance: CAPECITABINE
     Indication: PRODUCT USED FOR UNKNOWN INDICATION
     Dosage: 4 TABLETS TWICE PER DAY FOR 14 DAYS ;ONGOING: NO
     Route: 065
     Dates: start: 20180716, end: 201807
  13. ESCITALOPRAM [Concomitant]
     Active Substance: ESCITALOPRAM OXALATE
     Dosage: ONGOING: YES
     Route: 065
  14. METFORMIN [Concomitant]
     Active Substance: METFORMIN HYDROCHLORIDE
     Dosage: ONGOING: YES
     Route: 065
  15. METOCLOPRAMIDE. [Concomitant]
     Active Substance: METOCLOPRAMIDE
     Dosage: ONGOING: YES
     Route: 065

REACTIONS (6)
  - Swelling face [Recovered/Resolved]
  - Cholangiocarcinoma [Not Recovered/Not Resolved]
  - Hyperlipidaemia [Not Recovered/Not Resolved]
  - Diabetes mellitus [Not Recovered/Not Resolved]
  - Palmar-plantar erythrodysaesthesia syndrome [Recovering/Resolving]
  - Hypertension [Not Recovered/Not Resolved]

NARRATIVE: CASE EVENT DATE: 20180723
